FAERS Safety Report 4403767-1 (Version None)
Quarter: 2004Q3

REPORT INFORMATION
  Report Type: 
  Country: None (occurrence: None)
  Receive Date: 20040719
  Receipt Date: 20040708
  Transmission Date: 20050211
  Serious: Yes (Death)
  Sender: FDA-Public Use
  Company Number: S04-USA-03515-02

PATIENT
  Sex: Female
  Weight: 3.3 kg

DRUGS (15)
  1. LEXAPRO [Suspect]
     Indication: DEPRESSION
     Dosage: 10 MG QD TRANSPLACENTAL
     Route: 064
     Dates: start: 20030101, end: 20040427
  2. ZOFRAN [Concomitant]
  3. PHENERGAN [Concomitant]
  4. PRENATAL VITAMINS [Concomitant]
  5. MACROBID [Concomitant]
  6. COMPAZINE (PROCHLOPERAZINE EDISYLATE) [Concomitant]
  7. STOOL SOFTERNERS [Concomitant]
  8. AMOXICILLIN [Concomitant]
  9. MONISTAT [Concomitant]
  10. TUMS (CALCIUM CARBONATE) [Concomitant]
  11. ANTACID TAB [Concomitant]
  12. CALCIUM [Concomitant]
  13. VITAMIN D [Concomitant]
  14. VITAMIN K TAB [Concomitant]
  15. ERYTHROMYCIN [Concomitant]

REACTIONS (24)
  - APGAR SCORE LOW [None]
  - ATELECTASIS NEONATAL [None]
  - BLOOD PH DECREASED [None]
  - BLOOD PRESSURE DECREASED [None]
  - CARDIO-RESPIRATORY ARREST NEONATAL [None]
  - CYANOSIS NEONATAL [None]
  - DRUG EXPOSURE DURING PREGNANCY [None]
  - EXTRAMEDULLARY HAEMOPOIESIS [None]
  - GASTRIC HAEMORRHAGE [None]
  - HAEMOTHORAX [None]
  - HYPERTONIA NEONATAL [None]
  - HYPOVOLAEMIA [None]
  - MIGRATION OF IMPLANT [None]
  - NEONATAL RESPIRATORY ARREST [None]
  - PALLOR [None]
  - PCO2 INCREASED [None]
  - PO2 INCREASED [None]
  - PULMONARY HYPOPLASIA [None]
  - RED CELL DISTRIBUTION WIDTH DECREASED [None]
  - RESPIRATORY DISORDER [None]
  - RESPIRATORY RATE DECREASED [None]
  - SINUS TACHYCARDIA [None]
  - SUDDEN INFANT DEATH SYNDROME [None]
  - WHITE BLOOD CELL COUNT INCREASED [None]
